FAERS Safety Report 6133918-2 (Version None)
Quarter: 2009Q1

REPORT INFORMATION
  Report Type: 
  Country: None (occurrence: None)
  Receive Date: 20090326
  Receipt Date: 20090225
  Transmission Date: 20090719
  Serious: Yes (Other)
  Sender: FDA-Public Use
  Company Number: US-BAYER-200829300NA

PATIENT
  Age: 45 Year
  Sex: Male

DRUGS (19)
  1. MAGNEVIST [Suspect]
     Indication: NUCLEAR MAGNETIC RESONANCE IMAGING
     Dosage: TOTAL DAILY DOSE: 50 ML
     Dates: start: 20070205, end: 20070205
  2. OMNISCAN [Suspect]
     Indication: DRUG USE FOR UNKNOWN INDICATION
  3. OPTIMARK [Suspect]
     Indication: DRUG USE FOR UNKNOWN INDICATION
  4. MULTIHANCE [Suspect]
     Indication: DRUG USE FOR UNKNOWN INDICATION
  5. PROHANCE [Suspect]
     Indication: DRUG USE FOR UNKNOWN INDICATION
  6. NEORAL [Concomitant]
  7. PREDNISONE [Concomitant]
  8. RESTORIL [Concomitant]
  9. HYDROCODONE BITARTRATE [Concomitant]
  10. EPOGEN [Concomitant]
     Dates: start: 19900101, end: 19990101
  11. IRON SUPPLEMENT [Concomitant]
  12. MULTI-VITAMIN [Concomitant]
  13. HEART MEDICATION (NOS) [Concomitant]
  14. IMMUNOSUPPRESSANT MEDICATION NOS [Concomitant]
  15. PROCARDIA [Concomitant]
  16. COUMADIN [Concomitant]
  17. LIPITOR [Concomitant]
  18. DIGOXIN [Concomitant]
  19. PLAVIX [Concomitant]

REACTIONS (13)
  - ANXIETY [None]
  - BACK PAIN [None]
  - DISCOMFORT [None]
  - EMOTIONAL DISTRESS [None]
  - GENERAL PHYSICAL HEALTH DETERIORATION [None]
  - INJURY [None]
  - MAJOR DEPRESSION [None]
  - MOBILITY DECREASED [None]
  - NEPHROGENIC SYSTEMIC FIBROSIS [None]
  - OEDEMA PERIPHERAL [None]
  - PAIN [None]
  - PAIN IN EXTREMITY [None]
  - RASH [None]
